FAERS Safety Report 18979681 (Version 1)
Quarter: 2021Q1

REPORT INFORMATION
  Report Type: Spontaneous
  Country: GB (occurrence: GB)
  Receive Date: 20210308
  Receipt Date: 20210308
  Transmission Date: 20210420
  Serious: Yes (Life-Threatening, Other)
  Sender: FDA-Public Use
  Company Number: NVSC2021GB051845

PATIENT
  Age: 73 Year
  Sex: Male
  Weight: 69 kg

DRUGS (1)
  1. HYDROXYCHLOROQUINE SULFATE. [Suspect]
     Active Substance: HYDROXYCHLOROQUINE SULFATE
     Indication: COVID-19
     Dosage: UNK
     Route: 065

REACTIONS (2)
  - Torsade de pointes [Recovered/Resolved]
  - Product use in unapproved indication [Unknown]
